FAERS Safety Report 8812201 (Version 1)
Quarter: 2012Q4

REPORT INFORMATION
  Report Type: 
  Country: US (occurrence: US)
  Receive Date: 20120927
  Receipt Date: 20120927
  Transmission Date: 20130627
  Serious: Yes (Hospitalization, Other)
  Sender: FDA-Public Use
  Company Number: US-ROCHE-1126044

PATIENT
  Sex: Female

DRUGS (12)
  1. AVASTIN [Suspect]
     Indication: BREAST CANCER FEMALE
     Route: 065
  2. ADRIAMYCIN [Concomitant]
  3. CYTOXAN [Concomitant]
  4. TAXOL [Concomitant]
  5. GEMZAR [Concomitant]
  6. CISPLATIN [Concomitant]
  7. FASLODEX [Concomitant]
  8. ABRAXANE [Concomitant]
  9. FLEXERIL [Concomitant]
  10. DURAGESIC PATCH [Concomitant]
  11. APREDNISLON [Concomitant]
  12. TPN [Concomitant]

REACTIONS (6)
  - Asthma [Unknown]
  - Musculoskeletal stiffness [Unknown]
  - Muscle spasms [Unknown]
  - Malaise [Unknown]
  - Malaise [Unknown]
  - Compression fracture [Unknown]
